FAERS Safety Report 16455840 (Version 1)
Quarter: 2019Q2

REPORT INFORMATION
  Report Type: Spontaneous
  Country: FR (occurrence: FR)
  Receive Date: 20190620
  Receipt Date: 20190620
  Transmission Date: 20190711
  Serious: Yes (Hospitalization, Other)
  Sender: FDA-Public Use
  Company Number: FR-AUROBINDO-AUR-APL-2019-034796

PATIENT

DRUGS (18)
  1. METHYLPREDNISOLONE. [Suspect]
     Active Substance: METHYLPREDNISOLONE
     Indication: B-CELL LYMPHOMA
     Dosage: 40 MILLIGRAM (DOSAGE FORM: UNSPECIFIED)
     Route: 065
     Dates: start: 201307
  2. LEVACT [Suspect]
     Active Substance: BENDAMUSTINE HYDROCHLORIDE
     Dosage: 180 MILLIGRAM/SQ. METER EVERY MONTH (DOSAGE FORM: POWDER,CYCLIC)
     Route: 042
     Dates: start: 20130731
  3. LEVACT [Suspect]
     Active Substance: BENDAMUSTINE HYDROCHLORIDE
     Dosage: 180 MILLIGRAM/SQ. METER EVERY MONTH (DOSAGE FORM: POWDER,CYCLIC)
     Route: 042
     Dates: start: 20130731
  4. MABTHERA [Suspect]
     Active Substance: RITUXIMAB
     Dosage: 375 MILLIGRAM/SQ. METER (DOSAGE FORM: UNSPECIFIED)
     Route: 042
     Dates: start: 20130703
  5. AERIUS [Concomitant]
     Indication: FACE OEDEMA
     Dosage: UNK
     Route: 065
     Dates: start: 20130802
  6. CIPROFLOXACIN. [Suspect]
     Active Substance: CIPROFLOXACIN
     Indication: PYREXIA
     Dosage: 500 MILLIGRAM, DAILY (DOSAGE FORM: UNSPECIFIED)
     Route: 048
     Dates: start: 20130818
  7. MABTHERA [Suspect]
     Active Substance: RITUXIMAB
     Indication: NON-HODGKIN^S LYMPHOMA
     Dosage: 375 MILLIGRAM/SQ. METER (DOSAGE FORM: UNSPECIFIED)
     Route: 042
     Dates: start: 20130731, end: 20130731
  8. BACTRIM [Suspect]
     Active Substance: SULFAMETHOXAZOLE\TRIMETHOPRIM
     Indication: PRODUCT USED FOR UNKNOWN INDICATION
     Dosage: 3 DOSAGE FORM, EVERY WEEK
     Route: 048
     Dates: start: 20130704, end: 20130819
  9. TAGAMET [Concomitant]
     Active Substance: CIMETIDINE
     Indication: PRODUCT USED FOR UNKNOWN INDICATION
     Dosage: 800 MILLIGRAM
     Route: 065
  10. MABTHERA [Suspect]
     Active Substance: RITUXIMAB
     Dosage: 375 MILLIGRAM/SQ. METER (DOSAGE FORM: UNSPECIFIED)
     Route: 042
     Dates: start: 20130703
  11. ZINNAT [Suspect]
     Active Substance: CEFUROXIME
     Indication: PYREXIA
     Dosage: 500 MILLIGRAM
     Route: 065
     Dates: start: 20130818
  12. LASILIX [Concomitant]
     Active Substance: FUROSEMIDE
     Indication: PRODUCT USED FOR UNKNOWN INDICATION
     Dosage: UNK, (DOSAGE FORM: UNSPECIFIED)
     Route: 065
     Dates: start: 20130801
  13. METHYLPREDNISOLONE. [Suspect]
     Active Substance: METHYLPREDNISOLONE
     Indication: NON-HODGKIN^S LYMPHOMA
     Dosage: 40 MILLIGRAM (DOSAGE FORM: UNSPECIFIED)
     Route: 065
     Dates: start: 201307
  14. MOTILIUM [Suspect]
     Active Substance: DOMPERIDONE
     Indication: PRODUCT USED FOR UNKNOWN INDICATION
     Dosage: 500 MILLIGRAM, TWO TIMES A DAY
     Route: 065
     Dates: start: 20130814, end: 20130815
  15. ATARAX [Concomitant]
     Active Substance: HYDROXYZINE HYDROCHLORIDE
     Indication: PRODUCT USED FOR UNKNOWN INDICATION
     Dosage: 50 MILLIGRAM
     Route: 065
  16. LEVACT [Suspect]
     Active Substance: BENDAMUSTINE HYDROCHLORIDE
     Indication: B-CELL LYMPHOMA
     Dosage: 180 MILLIGRAM/SQ. METER EVERY MONTH (DOSAGE FORM: POWDER, CYCLIC)
     Route: 042
     Dates: start: 20130703
  17. LEVACT [Suspect]
     Active Substance: BENDAMUSTINE HYDROCHLORIDE
     Indication: NON-HODGKIN^S LYMPHOMA
     Dosage: 180 MILLIGRAM/SQ. METER EVERY MONTH (DOSAGE FORM: POWDER, CYCLIC)
     Route: 042
     Dates: start: 20130703
  18. MABTHERA [Suspect]
     Active Substance: RITUXIMAB
     Indication: B-CELL LYMPHOMA
     Dosage: 375 MILLIGRAM/SQ. METER (DOSAGE FORM: UNSPECIFIED)
     Route: 042
     Dates: start: 20130731, end: 20130731

REACTIONS (6)
  - Leukopenia [Unknown]
  - Pancytopenia [Recovering/Resolving]
  - Rash maculo-papular [Unknown]
  - Prescribed underdose [Unknown]
  - Febrile neutropenia [Recovering/Resolving]
  - Toxic skin eruption [Recovered/Resolved]

NARRATIVE: CASE EVENT DATE: 20130703
